FAERS Safety Report 7394365-9 (Version None)
Quarter: 2011Q2

REPORT INFORMATION
  Report Type: 
  Country: None (occurrence: None)
  Receive Date: 20110405
  Receipt Date: 20110323
  Transmission Date: 20111010
  Serious: Yes (Hospitalization, Other)
  Sender: FDA-Public Use
  Company Number: US-ELI_LILLY_AND_COMPANY-US201008003934

PATIENT
  Sex: Female

DRUGS (18)
  1. LASIX [Concomitant]
     Dosage: 40 MG, TWO TABLETS DAILY
     Route: 065
  2. LORTAB [Concomitant]
  3. NORCO [Concomitant]
     Indication: PAIN
     Dosage: 10/325 EVERY FOUR TO SIX HOURS, OTHER
     Route: 065
  4. NEURONTIN [Concomitant]
     Dosage: 800 MG, 3/D
     Route: 065
  5. CREON [Concomitant]
     Indication: DYSPEPSIA
     Dosage: UNK, UNKNOWN
     Route: 065
  6. EXELON [Concomitant]
  7. MESTINON [Concomitant]
     Indication: MYASTHENIA GRAVIS
     Dosage: UNK, UNKNOWN
     Route: 065
  8. CYMBALTA [Concomitant]
     Dosage: 60 MG, DAILY (1/D)
     Route: 065
  9. PREDNISONE [Concomitant]
     Dosage: 5 MG, DAILY (1/D) (WITH FOOD)
     Route: 065
  10. CARAFATE [Concomitant]
     Dosage: 1 BEFORE MEALS
     Route: 065
  11. ADVAIR DISKUS 100/50 [Concomitant]
     Dosage: UNK, UNKNOWN
     Route: 065
  12. IMITREX [Concomitant]
     Indication: MIGRAINE
     Dosage: UNK, UNKNOWN
     Route: 065
  13. MULTIVITAMIN [Concomitant]
     Dosage: UNK, UNKNOWN
     Route: 065
  14. FORTEO [Suspect]
     Indication: OSTEOPOROSIS
     Dosage: 20 UG, DAILY (1/D)
     Dates: start: 20100101
  15. PHENERGAN HCL [Concomitant]
  16. NAMENDA [Concomitant]
  17. REGLAN [Concomitant]
     Dosage: 10 MG, 4/D
     Route: 065
  18. ALBUTEROL [Concomitant]
     Dosage: UNK, 2/D
     Route: 065

REACTIONS (14)
  - ABDOMINAL PAIN [None]
  - LOWER RESPIRATORY TRACT INFECTION [None]
  - MIGRAINE [None]
  - NAUSEA [None]
  - BLOOD AMYLASE INCREASED [None]
  - VOMITING PROJECTILE [None]
  - RENAL DISORDER [None]
  - ABDOMINAL PAIN UPPER [None]
  - HYPOPHAGIA [None]
  - PANCREATITIS ACUTE [None]
  - ASTHENIA [None]
  - PANCREATITIS [None]
  - MEMORY IMPAIRMENT [None]
  - MALAISE [None]
